FAERS Safety Report 23553531 (Version 1)
Quarter: 2024Q1

REPORT INFORMATION
  Report Type: Spontaneous
  Country: US (occurrence: None)
  Receive Date: 20240221
  Receipt Date: 20240221
  Transmission Date: 20240409
  Serious: Yes (Hospitalization)
  Sender: FDA-Public Use
  Company Number: None

PATIENT
  Age: 77 Year
  Sex: Female
  Weight: 58.51 kg

DRUGS (8)
  1. APIXABAN [Suspect]
     Active Substance: APIXABAN
     Indication: Atrial fibrillation
     Dosage: FREQUENCY : TWICE A DAY;?
     Route: 048
     Dates: start: 20210306, end: 20240210
  2. APIXABAN [Suspect]
     Active Substance: APIXABAN
     Indication: Cerebrovascular accident
  3. METOPROLOL [Concomitant]
     Active Substance: METOPROLOL
  4. T3/T4 thyroid hormone (porcine) [Concomitant]
  5. Estraidiol [Concomitant]
  6. Viactiv [Concomitant]
  7. VITAMINS [Concomitant]
     Active Substance: VITAMINS
  8. MAGNESIUM CITRATE [Concomitant]
     Active Substance: MAGNESIUM CITRATE

REACTIONS (21)
  - Gastrointestinal disorder [None]
  - Skin disorder [None]
  - Contusion [None]
  - Headache [None]
  - Epistaxis [None]
  - Rash [None]
  - Flushing [None]
  - Pruritus [None]
  - Anaemia [None]
  - Hypotension [None]
  - Depressed level of consciousness [None]
  - Constipation [None]
  - Abdominal distension [None]
  - Diarrhoea [None]
  - Swelling of eyelid [None]
  - Erythema of eyelid [None]
  - Eye disorder [None]
  - Fatigue [None]
  - Dizziness [None]
  - Heart rate increased [None]
  - Dyspnoea [None]

NARRATIVE: CASE EVENT DATE: 20210306
